FAERS Safety Report 5528076-9 (Version None)
Quarter: 2007Q4

REPORT INFORMATION
  Report Type: 
  Country: None (occurrence: None)
  Receive Date: 20071128
  Receipt Date: 20071120
  Transmission Date: 20080405
  Serious: Yes (Other)
  Sender: FDA-Public Use
  Company Number: PHEH2007US15067

PATIENT
  Sex: Male

DRUGS (2)
  1. COUMADIN [Concomitant]
     Route: 048
  2. GLEEVEC [Suspect]
     Indication: CHRONIC MYELOID LEUKAEMIA
     Dosage: 1 DF, QD
     Route: 048

REACTIONS (3)
  - ATRIAL FIBRILLATION [None]
  - PLATELET COUNT INCREASED [None]
  - WHITE BLOOD CELL COUNT INCREASED [None]
